FAERS Safety Report 6744656-7 (Version None)
Quarter: 2010Q2

REPORT INFORMATION
  Report Type: 
  Country: None (occurrence: None)
  Receive Date: 20100527
  Receipt Date: 20100518
  Transmission Date: 20101027
  Serious: Yes (Other)
  Sender: FDA-Public Use
  Company Number: CH-WYE-H15254010

PATIENT
  Age: 49 Year
  Sex: Male

DRUGS (1)
  1. PANTOPRAZOLE SODIUM [Suspect]
     Route: 048
     Dates: start: 20100310, end: 20100310

REACTIONS (3)
  - RASH ERYTHEMATOUS [None]
  - SWELLING FACE [None]
  - SWOLLEN TONGUE [None]
